FAERS Safety Report 11411302 (Version 1)
Quarter: 2015Q3

REPORT INFORMATION
  Report Type: Spontaneous
  Country: US (occurrence: US)
  Receive Date: 20150821
  Receipt Date: 20150821
  Transmission Date: 20151125
  Serious: No
  Sender: FDA-Public Use
  Company Number: US-ELI_LILLY_AND_COMPANY-US201005007392

PATIENT
  Sex: Female

DRUGS (8)
  1. HUMULIN N [Suspect]
     Active Substance: INSULIN HUMAN
     Dosage: 12 U, EACH EVENING
     Dates: end: 20100525
  2. HUMULIN N [Suspect]
     Active Substance: INSULIN HUMAN
     Indication: DIABETES MELLITUS
     Dosage: 10 U, EACH MORNING
     Dates: end: 20100525
  3. HUMULIN N [Suspect]
     Active Substance: INSULIN HUMAN
     Dosage: 15 U, EACH EVENING
  4. HUMULIN N [Suspect]
     Active Substance: INSULIN HUMAN
     Dosage: 12 U, EACH EVENING
     Dates: end: 20100525
  5. HUMULIN N [Suspect]
     Active Substance: INSULIN HUMAN
     Dosage: 20 U, EACH MORNING
  6. HUMULIN N [Suspect]
     Active Substance: INSULIN HUMAN
     Dosage: 15 U, EACH EVENING
  7. HUMULIN N [Suspect]
     Active Substance: INSULIN HUMAN
     Dosage: 10 U, EACH MORNING
     Dates: end: 20100525
  8. HUMULIN N [Suspect]
     Active Substance: INSULIN HUMAN
     Dosage: 20 U, EACH MORNING

REACTIONS (3)
  - Anxiety [Unknown]
  - Blood glucose increased [Unknown]
  - Anger [Unknown]
